FAERS Safety Report 8614049-6 (Version None)
Quarter: 2012Q3

REPORT INFORMATION
  Report Type: 
  Country: None (occurrence: None)
  Receive Date: 20120823
  Receipt Date: 20120810
  Transmission Date: 20120928
  Serious: Yes (Death, Hospitalization, Other)
  Sender: FDA-Public Use
  Company Number: AT-009507513-2012SP031708

PATIENT

DRUGS (9)
  1. CORTICOSTEROIDS (UNSPECIFIED) [Concomitant]
     Indication: GRAFT VERSUS HOST DISEASE
     Dosage: INDICATION: GRADE 2 ACUTE GVHD
     Route: 065
  2. MYCOPHENOLATE MEFETIL [Concomitant]
     Dosage: 1.5 MG/KG, BID
     Route: 065
  3. ITRACONAZOLE [Concomitant]
     Dosage: 200 MG, BID
     Route: 042
  4. NOXAFIL [Suspect]
     Indication: ANTIFUNGAL PROPHYLAXIS
     Dosage: UNK UNK, UNKNOWN
     Route: 065
  5. AMPHOTERICIN B [Concomitant]
     Dosage: 5 MG/KG, QD
     Route: 065
  6. METHYLPREDNISOLONE [Concomitant]
     Dosage: 2 MG/KG, QD
     Route: 065
  7. REMICADE [Concomitant]
     Indication: GRAFT VERSUS HOST DISEASE
     Dosage: TWO DOSES
     Route: 065
  8. VORICONAZOLE [Concomitant]
     Indication: ANTIFUNGAL PROPHYLAXIS
     Dosage: 200 MG, BID
     Route: 042
  9. CASPOFUNGIN ACETATE [Concomitant]
     Dosage: 70 MG, QD
     Route: 065

REACTIONS (3)
  - MULTI-ORGAN FAILURE [None]
  - GRAFT VERSUS HOST DISEASE [None]
  - DIARRHOEA [None]
